FAERS Safety Report 4954983-1 (Version None)
Quarter: 2006Q1

REPORT INFORMATION
  Report Type: 
  Country: None (occurrence: None)
  Receive Date: 20060322
  Receipt Date: 20060314
  Transmission Date: 20060701
  Serious: Yes (Disabling)
  Sender: FDA-Public Use
  Company Number: 2006020098

PATIENT
  Age: 53 Year
  Sex: Female
  Weight: 81.1939 kg

DRUGS (7)
  1. LIPITOR [Suspect]
     Indication: PROPHYLAXIS
     Dosage: 40 MG (40 MG, 1 IN 1 D),
     Dates: start: 20030601
  2. PLAVIX [Concomitant]
  3. ADVAIR DISKUS 100/50 [Concomitant]
  4. ATENOLOL [Concomitant]
  5. ASPIRIN [Concomitant]
  6. PEPCID [Concomitant]
  7. AMBIEN [Concomitant]

REACTIONS (12)
  - ANXIETY [None]
  - ARTHRITIS [None]
  - CARPAL TUNNEL SYNDROME [None]
  - CONSTIPATION [None]
  - DEPRESSION [None]
  - ECONOMIC PROBLEM [None]
  - FLATULENCE [None]
  - HEADACHE [None]
  - HYPERCHLORHYDRIA [None]
  - LIMB INJURY [None]
  - TENDONITIS [None]
  - TREATMENT NONCOMPLIANCE [None]
